FAERS Safety Report 12746663 (Version 1)
Quarter: 2016Q3

REPORT INFORMATION
  Report Type: Spontaneous
  Country: US (occurrence: US)
  Receive Date: 20160915
  Receipt Date: 20160915
  Transmission Date: 20161109
  Serious: Yes (Other)
  Sender: FDA-Public Use
  Company Number: None

PATIENT
  Age: 78 Year
  Sex: Female
  Weight: 142.7 kg

DRUGS (24)
  1. AMLODIPINE [Concomitant]
     Active Substance: AMLODIPINE BESYLATE
  2. GLIPIZIDE. [Concomitant]
     Active Substance: GLIPIZIDE
  3. ASPIRIN. [Concomitant]
     Active Substance: ASPIRIN
  4. ALBUTEROL/IPRATROPIUM [Concomitant]
     Active Substance: ALBUTEROL\IPRATROPIUM
  5. LACTULOSE. [Concomitant]
     Active Substance: LACTULOSE
  6. FLUTICASONE/SALMETEROL [Concomitant]
     Active Substance: FLUTICASONE PROPIONATE\SALMETEROL XINAFOATE
  7. METOPROLOL. [Concomitant]
     Active Substance: METOPROLOL
  8. TICAGRELOR [Concomitant]
     Active Substance: TICAGRELOR
  9. HYDRALAZINE [Concomitant]
     Active Substance: HYDRALAZINE HYDROCHLORIDE
  10. AMITRIPTYLINE [Concomitant]
     Active Substance: AMITRIPTYLINE
  11. CLONIDINE. [Concomitant]
     Active Substance: CLONIDINE
  12. ROPINIROLE. [Concomitant]
     Active Substance: ROPINIROLE
  13. LEVOTHYROXINE. [Concomitant]
     Active Substance: LEVOTHYROXINE
  14. ALPRAZOLAM. [Concomitant]
     Active Substance: ALPRAZOLAM
  15. ENOXAPARIN, 40 MG [Suspect]
     Active Substance: ENOXAPARIN
     Indication: THROMBOSIS PROPHYLAXIS
     Route: 058
     Dates: start: 20160815, end: 20160817
  16. NOVOLOG [Concomitant]
     Active Substance: INSULIN ASPART
  17. NPH INSULIN [Concomitant]
     Active Substance: INSULIN BEEF
  18. KCL [Concomitant]
     Active Substance: POTASSIUM CHLORIDE
  19. PRAVASTATIN. [Concomitant]
     Active Substance: PRAVASTATIN
  20. BISACODYL. [Concomitant]
     Active Substance: BISACODYL
  21. FUROSEMIDE. [Concomitant]
     Active Substance: FUROSEMIDE
  22. ISOSORBIDE. [Concomitant]
     Active Substance: ISOSORBIDE
  23. LOSARTAN. [Concomitant]
     Active Substance: LOSARTAN
  24. PREDNISONE. [Concomitant]
     Active Substance: PREDNISONE

REACTIONS (3)
  - Impaired healing [None]
  - Injection site rash [None]
  - Injection site vesicles [None]

NARRATIVE: CASE EVENT DATE: 20160815
